FAERS Safety Report 6623409-4 (Version None)
Quarter: 2010Q1

REPORT INFORMATION
  Report Type: 
  Country: None (occurrence: None)
  Receive Date: 20100310
  Receipt Date: 20091207
  Transmission Date: 20100710
  Serious: No
  Sender: FDA-Public Use
  Company Number: US-BIOGENIDEC-2009BI039632

PATIENT
  Age: 55 Year
  Sex: Female

DRUGS (5)
  1. AVONEX [Suspect]
     Indication: MULTIPLE SCLEROSIS
     Route: 030
     Dates: start: 19990101, end: 20030101
  2. AVONEX [Suspect]
     Route: 030
     Dates: start: 20030101
  3. FORTICAL [Concomitant]
     Indication: OSTEOPOROSIS PROPHYLAXIS
     Route: 055
  4. QUINAPRIL [Concomitant]
     Indication: HYPERTENSION
     Route: 048
  5. BACLOFEN [Concomitant]
     Indication: PAIN IN EXTREMITY
     Route: 048

REACTIONS (3)
  - MEMORY IMPAIRMENT [None]
  - MOBILITY DECREASED [None]
  - MULTIPLE SCLEROSIS [None]
